FAERS Safety Report 16118968 (Version 2)
Quarter: 2023Q2

REPORT INFORMATION
  Report Type: Spontaneous
  Country: FI (occurrence: FI)
  Receive Date: 20190326
  Receipt Date: 20230427
  Transmission Date: 20230722
  Serious: Yes (Hospitalization, Other)
  Sender: FDA-Public Use
  Company Number: None

PATIENT
  Age: 68 Year
  Sex: Female
  Weight: 88.7 kg

DRUGS (20)
  1. TOUJEO [Suspect]
     Active Substance: INSULIN GLARGINE
     Indication: Type 2 diabetes mellitus
     Dosage: 66 IU, QD
     Route: 058
  2. JANUMET [Suspect]
     Active Substance: METFORMIN HYDROCHLORIDE\SITAGLIPTIN PHOSPHATE
     Indication: Diabetes mellitus
     Dosage: 2 DF, Q12H
     Route: 048
     Dates: start: 20170227, end: 20170614
  3. HYDROCHLOROTHIAZIDE\VALSARTAN [Concomitant]
     Active Substance: HYDROCHLOROTHIAZIDE\VALSARTAN
     Indication: Blood pressure measurement
     Dosage: 1 DF, QD
     Route: 048
  4. CHLORHEXIDINE GLUCONATE [Concomitant]
     Active Substance: CHLORHEXIDINE GLUCONATE
     Dosage: 10 ML, PRN
     Route: 048
  5. ASPIRIN [Concomitant]
     Active Substance: ASPIRIN
     Indication: Haemorrhage
     Dosage: 1 DF, QD
     Route: 048
  6. ASPIRIN [Concomitant]
     Active Substance: ASPIRIN
     Indication: Cardiovascular disorder
  7. VAGIFEM [Concomitant]
     Active Substance: ESTRADIOL
     Dosage: 2 DF, QW
     Route: 067
  8. METOPROLOL TARTRATE [Concomitant]
     Active Substance: METOPROLOL TARTRATE
     Indication: Blood pressure measurement
     Dosage: 1 DF, QD
     Route: 048
  9. ATORVASTATIN [Concomitant]
     Active Substance: ATORVASTATIN
     Indication: Blood cholesterol
     Dosage: 20 MG, QD
     Route: 048
  10. LEVOTHYROXINE [Concomitant]
     Active Substance: LEVOTHYROXINE
     Indication: Hypothyroidism
     Dosage: 50 UG (2 TABLETS), QD
     Route: 048
  11. NOVORAPID [Concomitant]
     Active Substance: INSULIN ASPART
     Indication: Type 2 diabetes mellitus
     Dosage: STRENGTH: 100 U/ML; 8+36+28 DAILY, QD
     Route: 058
  12. NOVORAPID [Concomitant]
     Active Substance: INSULIN ASPART
     Dosage: 44 + 36 UNITS PER DAY, QD
  13. DEVISOL [Concomitant]
     Dosage: 20 UG, QD
     Route: 048
  14. POLYVINYL ALCOHOL [Concomitant]
     Active Substance: POLYVINYL ALCOHOL
     Dosage: UNKNOWN
     Route: 047
  15. PANADOL [Concomitant]
     Active Substance: ACETAMINOPHEN
     Dosage: 0.5 G, PRN
     Route: 048
  16. LETROZOLE [Concomitant]
     Active Substance: LETROZOLE
     Indication: Neoplasm malignant
     Dosage: UNKNOWN
     Route: 065
  17. TENOX [AMLODIPINE MALEATE] [Concomitant]
     Dosage: 10 MG, PRN
     Route: 048
  18. FASLODEX [Concomitant]
     Active Substance: FULVESTRANT
     Indication: Adjuvant therapy
     Dosage: 250 MG, QM
     Route: 030
  19. VASOTEC [Concomitant]
     Active Substance: ENALAPRIL MALEATE
     Indication: Neoplasm malignant
     Dosage: UNK, Q4W
     Route: 065
  20. OFTAN [BENZALKONIUM CHLORIDE;POLYVINYL ALCOHOL;SODIUM CHLORIDE] [Concomitant]
     Dosage: UNK

REACTIONS (28)
  - Breast cancer metastatic [Unknown]
  - Pancreatitis [Not Recovered/Not Resolved]
  - Amylase increased [Recovered/Resolved]
  - Abdominal pain upper [Unknown]
  - Nausea [Unknown]
  - Vomiting [Recovered/Resolved]
  - Dizziness [Not Recovered/Not Resolved]
  - Alopecia [Not Recovered/Not Resolved]
  - Hepatic enzyme increased [Not Recovered/Not Resolved]
  - Blood glucose increased [Not Recovered/Not Resolved]
  - Blister [Not Recovered/Not Resolved]
  - Dyspepsia [Unknown]
  - Rash [Not Recovered/Not Resolved]
  - Pruritus [Not Recovered/Not Resolved]
  - Dry skin [Unknown]
  - Pancreatic enzymes increased [Recovered/Resolved]
  - Liver function test increased [Unknown]
  - Alopecia [Not Recovered/Not Resolved]
  - Fungal infection [Unknown]
  - Balance disorder [Unknown]
  - Dehydration [Unknown]
  - Vertigo [Unknown]
  - Dizziness [Recovered/Resolved]
  - Vulvovaginal candidiasis [Not Recovered/Not Resolved]
  - Fatigue [Unknown]
  - Gastric disorder [Unknown]
  - Bone disorder [Unknown]
  - Blood glucose increased [Unknown]

NARRATIVE: CASE EVENT DATE: 20170101
